FAERS Safety Report 20071422 (Version 4)
Quarter: 2021Q4

REPORT INFORMATION
  Report Type: Report from Study
  Country: US (occurrence: US)
  Receive Date: 20211115
  Receipt Date: 20211228
  Transmission Date: 20220304
  Serious: No
  Sender: FDA-Public Use
  Company Number: US-NOVARTISTESTPH-NVSC2021US260480

PATIENT
  Sex: Male
  Weight: 73.016 kg

DRUGS (7)
  1. TREPROSTINIL [Suspect]
     Active Substance: TREPROSTINIL
     Indication: Pulmonary arterial hypertension
     Dosage: UNK UNK, CONT (2 NG/KG/MIN)
     Route: 058
     Dates: start: 20211109
  2. TREPROSTINIL [Suspect]
     Active Substance: TREPROSTINIL
     Dosage: UNK UNK, CONT (10 NG/KG/MIN)
     Route: 058
  3. TREPROSTINIL [Suspect]
     Active Substance: TREPROSTINIL
     Dosage: UNK UNK, CONT (20 NG/KG/MIN)
     Route: 058
  4. SILDENAFIL CITRATE [Concomitant]
     Active Substance: SILDENAFIL CITRATE
     Indication: Product used for unknown indication
     Dosage: UNK
     Route: 065
  5. OPSUMIT [Concomitant]
     Active Substance: MACITENTAN
     Indication: Product used for unknown indication
     Dosage: UNK
     Route: 065
  6. UPTRAVI [Concomitant]
     Active Substance: SELEXIPAG
     Indication: Product used for unknown indication
     Dosage: UNK
     Route: 065
  7. AMLODIPINE [Concomitant]
     Active Substance: AMLODIPINE BESYLATE
     Indication: Product used for unknown indication
     Dosage: UNK
     Route: 065

REACTIONS (9)
  - Pain in jaw [Unknown]
  - Pain in extremity [Unknown]
  - Dizziness [Unknown]
  - Anaemia [Unknown]
  - Fluid retention [Unknown]
  - Fatigue [Unknown]
  - Hypotension [Unknown]
  - Injection site pain [Unknown]
  - Injection site erythema [Unknown]
